FAERS Safety Report 9493373 (Version 1)
Quarter: 2013Q3

REPORT INFORMATION
  Report Type: Spontaneous
  Country: ZA (occurrence: ZA)
  Receive Date: 20130902
  Receipt Date: 20130902
  Transmission Date: 20140515
  Serious: Yes (Death, Other)
  Sender: FDA-Public Use
  Company Number: ZA-JNJFOC-20130810584

PATIENT
  Sex: 0

DRUGS (10)
  1. DOXORUBICIN [Suspect]
     Indication: DIFFUSE LARGE B-CELL LYMPHOMA
     Route: 042
  2. CYCLOPHOSPHAMIDE [Suspect]
     Indication: DIFFUSE LARGE B-CELL LYMPHOMA
     Dosage: ON DAY 1
     Route: 042
  3. VINCRISTINE [Suspect]
     Indication: DIFFUSE LARGE B-CELL LYMPHOMA
     Dosage: ON DAY 1
     Route: 042
  4. PREDNISONE [Suspect]
     Indication: DIFFUSE LARGE B-CELL LYMPHOMA
     Dosage: ON DAYS 1-5
     Route: 048
  5. STAVUDINE [Suspect]
     Indication: ACQUIRED IMMUNODEFICIENCY SYNDROME
     Route: 065
  6. LAMIVUDINE [Suspect]
     Indication: ACQUIRED IMMUNODEFICIENCY SYNDROME
     Route: 065
  7. EFAVIRENZ [Suspect]
     Indication: ACQUIRED IMMUNODEFICIENCY SYNDROME
     Route: 065
  8. METHOTREXATE [Concomitant]
     Indication: PROPHYLAXIS
     Route: 037
  9. CYTARABINE [Concomitant]
     Indication: PROPHYLAXIS
     Route: 037
  10. DEXAMETHASONE [Concomitant]
     Indication: PROPHYLAXIS
     Route: 037

REACTIONS (5)
  - Neutropenic sepsis [Fatal]
  - Renal failure [Fatal]
  - Lymphoma [Fatal]
  - Sepsis [Fatal]
  - Diffuse large B-cell lymphoma [Unknown]
